FAERS Safety Report 5607832-2 (Version None)
Quarter: 2008Q1

REPORT INFORMATION
  Report Type: 
  Country: None (occurrence: None)
  Receive Date: 20080130
  Receipt Date: 20080123
  Transmission Date: 20080703
  Serious: Yes (Hospitalization, Other)
  Sender: FDA-Public Use
  Company Number: US-JNJFOC-20080106893

PATIENT
  Sex: Male

DRUGS (9)
  1. REOPRO [Suspect]
     Route: 042
  2. REOPRO [Suspect]
     Indication: PERCUTANEOUS CORONARY INTERVENTION
     Route: 042
  3. HEPARIN [Suspect]
     Indication: DRUG USE FOR UNKNOWN INDICATION
     Route: 041
  4. PROCRIT [Concomitant]
     Indication: MYOCARDIAL INFARCTION
     Route: 042
  5. PLACEBO [Concomitant]
     Indication: MYOCARDIAL INFARCTION
     Route: 042
  6. PLAVIX [Concomitant]
     Route: 065
  7. PLAVIX [Concomitant]
     Route: 065
  8. NIPRIDE [Concomitant]
     Route: 065
     Dates: start: 20080110, end: 20080111
  9. NIPRIDE [Concomitant]
     Route: 065
     Dates: start: 20080110, end: 20080111

REACTIONS (2)
  - THROMBOCYTOPENIA [None]
  - THROMBOSIS IN DEVICE [None]
